FAERS Safety Report 8541377-5 (Version None)
Quarter: 2012Q3

REPORT INFORMATION
  Report Type: 
  Country: None (occurrence: None)
  Receive Date: 20120726
  Receipt Date: 20110920
  Transmission Date: 20120928
  Serious: No
  Sender: FDA-Public Use
  Company Number: US-ASTRAZENECA-2011SE56763

PATIENT
  Age: 33 Year

DRUGS (4)
  1. TRAZODONE HCL [Concomitant]
  2. CLONAZEPAM [Concomitant]
  3. SEROQUEL [Suspect]
     Route: 048
  4. RISPERIDONE [Concomitant]

REACTIONS (3)
  - BURNING SENSATION [None]
  - DRUG INTOLERANCE [None]
  - FEELING ABNORMAL [None]
